FAERS Safety Report 17395133 (Version 2)
Quarter: 2020Q3

REPORT INFORMATION
  Report Type: Other
  Country: CA (occurrence: CA)
  Receive Date: 20200210
  Receipt Date: 20200703
  Transmission Date: 20201102
  Serious: Yes (Other)
  Sender: FDA-Public Use
  Company Number: CA-LUPIN HEALTHCARE (UK) LIMITED-2020-00566

PATIENT
  Age: 53 Year
  Sex: Male

DRUGS (3)
  1. PREDNISONE. [Suspect]
     Active Substance: PREDNISONE
     Indication: PYODERMA GANGRENOSUM
     Dosage: UNK
     Route: 048
  2. MUPIROCIN CALCIUM. [Suspect]
     Active Substance: MUPIROCIN CALCIUM
     Indication: ULCER
     Dosage: UNK
     Route: 061
  3. CEPHALEXIN. [Suspect]
     Active Substance: CEPHALEXIN
     Indication: ULCER
     Dosage: UNK
     Route: 048

REACTIONS (2)
  - Therapeutic product effect incomplete [Unknown]
  - Diabetes mellitus [Unknown]
